FAERS Safety Report 8570568-2 (Version None)
Quarter: 2012Q3

REPORT INFORMATION
  Report Type: 
  Country: None (occurrence: None)
  Receive Date: 20120804
  Receipt Date: 20120710
  Transmission Date: 20120928
  Serious: No
  Sender: FDA-Public Use
  Company Number: US-009507513-2012SP036404

PATIENT

DRUGS (6)
  1. BOCEPREVIR [Suspect]
     Indication: HEPATITIS C
     Dosage: 800 MG, TID
     Route: 048
  2. PEGASYS [Suspect]
     Indication: HEPATITIS C
     Dosage: 180 MICROGRAM, UNKNOWN
     Route: 065
  3. VESICARE [Concomitant]
     Dosage: 5 MG, UNKNOWN
     Route: 065
  4. IBUPROFEN [Concomitant]
     Dosage: 200 MG, UNKNOWN
     Route: 065
  5. VIMOVO [Concomitant]
     Dosage: 20 MG, UNK
  6. REBETOL [Suspect]
     Indication: HEPATITIS C
     Dosage: 200 MG, UNKNOWN
     Route: 065

REACTIONS (2)
  - NEUTROPENIA [None]
  - WHITE BLOOD CELL COUNT INCREASED [None]
